FAERS Safety Report 16053953 (Version 1)
Quarter: 2019Q1

REPORT INFORMATION
  Report Type: Report from Study
  Country: US (occurrence: US)
  Receive Date: 20190308
  Receipt Date: 20190308
  Transmission Date: 20190418
  Serious: No
  Sender: FDA-Public Use
  Company Number: PHEH2019US009464

PATIENT
  Sex: Female

DRUGS (2)
  1. ENTRESTO [Suspect]
     Active Substance: SACUBITRIL\VALSARTAN
     Indication: CARDIAC FAILURE CONGESTIVE
     Dosage: 1 DF (49 MG SACUBITRIL/ 51 MG VALSARTAN), QD
     Route: 048
  2. ENTRESTO [Suspect]
     Active Substance: SACUBITRIL\VALSARTAN
     Dosage: UNK, DOSE INCREASED
     Route: 065

REACTIONS (9)
  - Body temperature decreased [Recovered/Resolved]
  - Agitation [Unknown]
  - Weight increased [Unknown]
  - Heart rate decreased [Recovered/Resolved]
  - Stress [Unknown]
  - Hypotension [Recovered/Resolved]
  - Heart valve incompetence [Unknown]
  - Cardiac disorder [Unknown]
  - Fatigue [Unknown]
